FAERS Safety Report 7019640-9 (Version None)
Quarter: 2010Q3

REPORT INFORMATION
  Report Type: 
  Country: None (occurrence: None)
  Receive Date: 20100928
  Receipt Date: 20100928
  Transmission Date: 20110219
  Serious: Yes (Hospitalization)
  Sender: FDA-Public Use
  Company Number: None

PATIENT
  Age: 68 Year
  Sex: Female

DRUGS (10)
  1. WARFARIN SODIUM [Suspect]
     Indication: ATRIAL FIBRILLATION
     Dosage: 6 MG DAILY PO
     Route: 048
  2. WARFARIN SODIUM [Suspect]
     Indication: THROMBOSIS PROPHYLAXIS
     Dosage: 6 MG DAILY PO
     Route: 048
  3. ATENOLOL [Concomitant]
  4. SERTRALINE HYDROCHLORIDE [Concomitant]
  5. LISINOPRIL [Concomitant]
  6. ALLOPURINOL [Concomitant]
  7. GLUCOPHAGE [Concomitant]
  8. SIMVASTITIN [Concomitant]
  9. LASIX [Concomitant]
  10. PERCOCET [Concomitant]

REACTIONS (2)
  - PEPTIC ULCER [None]
  - UPPER GASTROINTESTINAL HAEMORRHAGE [None]
